FAERS Safety Report 6354027-3 (Version None)
Quarter: 2009Q3

REPORT INFORMATION
  Report Type: 
  Country: None (occurrence: None)
  Receive Date: 20090914
  Receipt Date: 20090904
  Transmission Date: 20100115
  Serious: No
  Sender: FDA-Public Use
  Company Number: US-B.I. PHARMACEUTICALS,INC./RIDGEFIELD-2009-BP-10505BP

PATIENT
  Sex: Male

DRUGS (8)
  1. MIRAPEX [Suspect]
     Indication: MUSCLE SPASMS
     Route: 048
  2. HYDROCODONE BITARTRATE [Concomitant]
     Indication: BACK PAIN
  3. HYDROCODONE BITARTRATE [Concomitant]
     Indication: SPINAL FUSION SURGERY
  4. VALIUM [Concomitant]
     Indication: BACK PAIN
  5. VALIUM [Concomitant]
     Indication: SPINAL FUSION SURGERY
  6. PREVACID [Concomitant]
     Indication: GASTROOESOPHAGEAL REFLUX DISEASE
  7. METOPROLOL TARTRATE [Concomitant]
     Indication: HYPERTENSION
  8. FUROSEMIDE [Concomitant]
     Indication: HYPERTENSION

REACTIONS (1)
  - DRUG INEFFECTIVE [None]
